FAERS Safety Report 6698653 (Version 7)
Quarter: 2012Q4

REPORT INFORMATION
  Report Type: 
  Country: JP (occurrence: JP)
  Receive Date: 20080714
  Receipt Date: 20120904
  Transmission Date: 20130627
  Serious: Yes (Hospitalization, Disabling, Other)
  Sender: FDA-Public Use
  Company Number: PHHO2005JP01998

PATIENT
  Age: 65 Year
  Sex: Female
  Weight: 50 kg

DRUGS (13)
  1. GLIVEC [Suspect]
     Indication: GASTROINTESTINAL STROMAL TUMOUR
     Dosage: 400 mg, QD
     Route: 048
     Dates: start: 20050121, end: 20050201
  2. GLIVEC [Suspect]
     Dosage: 400 mg, QD
     Route: 048
     Dates: start: 20050308, end: 20070415
  3. GLIVEC [Suspect]
     Dosage: 400 mg, QD
     Route: 048
     Dates: start: 20070703, end: 20080623
  4. GLIVEC [Suspect]
     Dosage: 400 mg, QD
     Route: 048
     Dates: start: 20080630, end: 20080904
  5. GLIVEC [Suspect]
     Dosage: 400 mg, QD
     Route: 048
     Dates: start: 20081110, end: 20090105
  6. GLIVEC [Suspect]
     Dosage: 400 mg, QD
     Route: 048
     Dates: start: 20090126, end: 20090803
  7. OMEPRAL [Concomitant]
     Indication: GASTRITIS
     Dosage: 40 mg, UNK
     Route: 042
     Dates: start: 20050122, end: 20050124
  8. GASTER [Concomitant]
     Indication: GASTRITIS
     Dosage: 40 mg, UNK
     Route: 042
     Dates: start: 20050120, end: 20050121
  9. GASTER [Concomitant]
     Indication: GASTRIC ULCER
     Dosage: 40 mg
     Route: 048
     Dates: start: 20050223
  10. ULCERLMIN [Concomitant]
     Indication: GASTRIC ULCER
     Dosage: 3 mg
     Route: 048
     Dates: start: 20050223
  11. MAALOX [Concomitant]
     Indication: GASTRIC ULCER
     Dosage: 3.6 mg
     Route: 048
     Dates: start: 20050223
  12. LASIX [Concomitant]
     Indication: OEDEMA
     Dosage: 20 mg
     Route: 048
     Dates: start: 20050328
  13. SLOW-K [Concomitant]
     Indication: HYPOKALAEMIA
     Dosage: 600 mg
     Route: 048
     Dates: start: 20050620

REACTIONS (12)
  - Renal cancer [Recovering/Resolving]
  - Second primary malignancy [Recovering/Resolving]
  - Adenocarcinoma gastric [Recovering/Resolving]
  - Neoplasm progression [Not Recovered/Not Resolved]
  - Malignant neoplasm progression [Not Recovered/Not Resolved]
  - Gastric ulcer haemorrhage [Recovered/Resolved]
  - Haematemesis [Recovered/Resolved]
  - Haemoglobin decreased [Recovered/Resolved]
  - Blood creatine phosphokinase increased [Recovered/Resolved]
  - Ileus [Recovered/Resolved]
  - Alopecia [Recovering/Resolving]
  - Oedema [Recovering/Resolving]
